FAERS Safety Report 9541903 (Version 1)
Quarter: 2013Q3

REPORT INFORMATION
  Report Type: Spontaneous
  Country: US (occurrence: US)
  Receive Date: 20130916
  Receipt Date: 20130916
  Transmission Date: 20140515
  Serious: Yes (Other)
  Sender: FDA-Public Use
  Company Number: US-BAYER-2013-111066

PATIENT
  Age: 15 Year
  Sex: Male

DRUGS (2)
  1. ANTIHEMOPHILIC FACTOR VIII (RECOMBINANT), SUCROSE FORMULATED [Suspect]
     Indication: IMMUNE TOLERANCE INDUCTION
     Dosage: 100 IU/KG, QD
  2. ANTIHEMOPHILIC FACTOR VIII (RECOMBINANT), SUCROSE FORMULATED [Suspect]
     Indication: FACTOR VIII DEFICIENCY
     Dosage: 50 IU/KG QOD

REACTIONS (2)
  - Anti factor VIII antibody positive [Recovered/Resolved]
  - Drug ineffective [Recovered/Resolved]
